FAERS Safety Report 8484043-7 (Version None)
Quarter: 2012Q3

REPORT INFORMATION
  Report Type: 
  Country: None (occurrence: None)
  Receive Date: 20120703
  Receipt Date: 20120622
  Transmission Date: 20120928
  Serious: Yes (Other)
  Sender: FDA-Public Use
  Company Number: FR-MPIJNJ-2012-02764

PATIENT

DRUGS (4)
  1. DEXAMETHASONE [Suspect]
     Indication: MULTIPLE MYELOMA
     Dosage: 40 MG, UNK
     Route: 042
     Dates: start: 20120416
  2. THALIDOMIDE [Suspect]
     Indication: MULTIPLE MYELOMA
     Dosage: 100 MG, UNK
     Route: 048
     Dates: start: 20120416
  3. VELCADE [Suspect]
     Indication: MULTIPLE MYELOMA
     Dosage: 1 MG/M2, UNK
     Route: 065
     Dates: start: 20120416
  4. VELCADE [Suspect]
     Dosage: 1.3 MG/M2, UNK
     Route: 042

REACTIONS (1)
  - ATRIAL FIBRILLATION [None]
